FAERS Safety Report 7270564-1 (Version None)
Quarter: 2011Q1

REPORT INFORMATION
  Report Type: 
  Country: None (occurrence: None)
  Receive Date: 20110124
  Receipt Date: 20110124
  Transmission Date: 20110831
  Serious: Yes (Other)
  Sender: FDA-Public Use
  Company Number: None

PATIENT
  Age: 40 Year
  Sex: Female
  Weight: 63.5036 kg

DRUGS (2)
  1. OXYCONTIN [Suspect]
     Indication: COMPLEX REGIONAL PAIN SYNDROME
     Dosage: 40MG 1X A DAY PO
     Route: 048
     Dates: start: 20110120, end: 20110120
  2. OXYCONTIN [Suspect]
     Indication: COMPLEX REGIONAL PAIN SYNDROME
     Dosage: 40 MG 2X A DAY PO
     Route: 048
     Dates: start: 20101031, end: 20101101

REACTIONS (5)
  - INFLUENZA LIKE ILLNESS [None]
  - NO THERAPEUTIC RESPONSE [None]
  - MALAISE [None]
  - IMPAIRED DRIVING ABILITY [None]
  - FEELING ABNORMAL [None]
